FAERS Safety Report 25706145 (Version 1)
Quarter: 2025Q3

REPORT INFORMATION
  Report Type: Report from Study
  Country: US (occurrence: US)
  Receive Date: 20250820
  Receipt Date: 20250820
  Transmission Date: 20251021
  Serious: Yes (Other)
  Sender: AIMMUNE
  Company Number: US-ZENPEP LLC-2025AIMT00788

PATIENT

DRUGS (1)
  1. ZENPEP [Suspect]
     Active Substance: PANCRELIPASE AMYLASE\PANCRELIPASE LIPASE\PANCRELIPASE PROTEASE
     Indication: Pancreatic failure
     Route: 048

REACTIONS (4)
  - Pancreatitis [Unknown]
  - Hepatomegaly [Unknown]
  - Therapy interrupted [Unknown]
  - Product supply issue [Unknown]

NARRATIVE: CASE EVENT DATE: 20250815
